FAERS Safety Report 9538961 (Version 1)
Quarter: 2013Q2

REPORT INFORMATION
  Report Type: Spontaneous
  Country: US (occurrence: None)
  Receive Date: 20130517
  Receipt Date: 20130517
  Transmission Date: 20140414
  Serious: Yes (Other)
  Sender: FDA-Public Use
  Company Number: 1000042614

PATIENT
  Age: 65 Year
  Sex: Female

DRUGS (1)
  1. VIIBRYD [Suspect]

REACTIONS (5)
  - Oral discomfort [None]
  - Vulvovaginal burning sensation [None]
  - Paraesthesia [None]
  - Glossodynia [None]
  - Lip pain [None]
